FAERS Safety Report 7098207-0 (Version None)
Quarter: 2010Q4

REPORT INFORMATION
  Report Type: 
  Country: None (occurrence: None)
  Receive Date: 20101104
  Receipt Date: 20101022
  Transmission Date: 20110411
  Serious: Yes (Hospitalization)
  Sender: FDA-Public Use
  Company Number: DSA_44190_2010

PATIENT
  Age: 19 Year
  Sex: Female

DRUGS (1)
  1. WELLBUTRIN XL [Suspect]
     Indication: DEPRESSION
     Dosage: 6000 MG 1X, NOT THE PRESCRIBED AMOUNT ORAL
     Route: 048
     Dates: start: 20101020, end: 20101020

REACTIONS (7)
  - ALTERED STATE OF CONSCIOUSNESS [None]
  - EPILEPSY [None]
  - HALLUCINATION [None]
  - HYPOAESTHESIA ORAL [None]
  - INTENTIONAL OVERDOSE [None]
  - SUICIDE ATTEMPT [None]
  - TACHYCARDIA [None]
